FAERS Safety Report 6445189-8 (Version None)
Quarter: 2009Q4

REPORT INFORMATION
  Report Type: 
  Country: None (occurrence: None)
  Receive Date: 20091118
  Receipt Date: 20081205
  Transmission Date: 20100525
  Serious: No
  Sender: FDA-Public Use
  Company Number: US-BRISTOL-MYERS SQUIBB COMPANY-14433379

PATIENT
  Age: 43 Year
  Sex: Female
  Weight: 63 kg

DRUGS (7)
  1. GLUCOPHAGE [Suspect]
     Indication: POLYCYSTIC OVARIES
     Dosage: GLUCOPHAGE XR TAKEN FOR 9 YEARS.
     Dates: start: 19990701, end: 20080101
  2. METFORMIN HCL [Suspect]
     Dosage: METFORMIN ER
     Dates: start: 20080101, end: 20081001
  3. TRICOR [Concomitant]
     Dates: start: 20061101, end: 20071101
  4. ZETIA [Concomitant]
     Dosage: TAKEN 3YEARS PRIOR TO 2006
  5. DIOVAN [Concomitant]
     Dosage: FOR 5 YEARS AND CONTINUES
  6. SYNTHROID [Concomitant]
     Dosage: TAKEN FOR 5 YEARS AND CONTINUES
  7. MULTI-VITAMINS [Concomitant]

REACTIONS (3)
  - GASTROINTESTINAL DISORDER [None]
  - PERNICIOUS ANAEMIA [None]
  - VITAMIN B12 DEFICIENCY [None]
